FAERS Safety Report 26105564 (Version 1)
Quarter: 2025Q4

REPORT INFORMATION
  Report Type: Spontaneous
  Country: US (occurrence: US)
  Receive Date: 20251201
  Receipt Date: 20251201
  Transmission Date: 20260117
  Serious: No
  Sender: AJANTA PHARMA USA INC
  Company Number: US-AJANTA-2025AJA00155

PATIENT
  Age: 52 Year
  Sex: Female

DRUGS (1)
  1. DULOXETINE [Suspect]
     Active Substance: DULOXETINE
     Indication: Pain
     Dates: start: 20251030, end: 202511

REACTIONS (5)
  - Migraine [Unknown]
  - Brain fog [Unknown]
  - Vomiting [Unknown]
  - Dry mouth [Unknown]
  - Throat tightness [Unknown]

NARRATIVE: CASE EVENT DATE: 20251030
